FAERS Safety Report 18632282 (Version 1)
Quarter: 2020Q4

REPORT INFORMATION
  Report Type: Spontaneous
  Country: US (occurrence: US)
  Receive Date: 20201218
  Receipt Date: 20201218
  Transmission Date: 20210114
  Serious: No
  Sender: FDA-Public Use
  Company Number: US-LUPIN PHARMACEUTICALS INC.-2020-05405

PATIENT
  Age: 16 Year
  Sex: Male

DRUGS (2)
  1. BIMATOPROST. [Suspect]
     Active Substance: BIMATOPROST
     Indication: GLAUCOMA
     Dosage: UNK (RECEIVED BIMATOPROST FOR NEARLY A YEAR)
     Route: 061
  2. XALATAN [Suspect]
     Active Substance: LATANOPROST
     Indication: GLAUCOMA
     Dosage: UNK (NEARLY 3 CUMULATIVE YEARS OF UNILATERAL EXPOSURE)
     Route: 061

REACTIONS (2)
  - Prostaglandin analogue periorbitopathy [Unknown]
  - Conjunctival hyperaemia [Unknown]
